FAERS Safety Report 10502238 (Version 2)
Quarter: 2015Q1

REPORT INFORMATION
  Report Type: Spontaneous
  Country: FI (occurrence: FI)
  Receive Date: 20141007
  Receipt Date: 20150227
  Transmission Date: 20150720
  Serious: Yes (Death, Other)
  Sender: FDA-Public Use
  Company Number: FI-INCYTE CORPORATION-2014IN002846

PATIENT
  Age: 56 Year
  Sex: Male

DRUGS (1)
  1. JAKAFI [Suspect]
     Active Substance: RUXOLITINIB
     Indication: MYELOFIBROSIS
     Dosage: UNK UKN, UNK
     Route: 065
     Dates: start: 20120920, end: 20121201

REACTIONS (4)
  - Ascites [Unknown]
  - Drug ineffective [Unknown]
  - Escherichia sepsis [Unknown]
  - Death [Fatal]

NARRATIVE: CASE EVENT DATE: 201212
